FAERS Safety Report 8188869-9 (Version None)
Quarter: 2012Q1

REPORT INFORMATION
  Report Type: 
  Country: None (occurrence: None)
  Receive Date: 20120306
  Receipt Date: 20120227
  Transmission Date: 20120608
  Serious: Yes (Other)
  Sender: FDA-Public Use
  Company Number: JP-FRI-1000028221

PATIENT
  Sex: Female

DRUGS (11)
  1. LIPITOR [Suspect]
     Indication: HYPERLIPIDAEMIA
     Route: 048
     Dates: start: 20111003, end: 20120110
  2. MEMANTINE [Suspect]
     Dosage: 10 MG
     Route: 048
     Dates: start: 20111224, end: 20111230
  3. ALOSENN [Concomitant]
     Indication: CONSTIPATION
     Dosage: 0.5 G
     Route: 048
     Dates: start: 20110114
  4. GLYCYRON [Concomitant]
     Indication: HEPATIC FUNCTION ABNORMAL
     Route: 048
     Dates: start: 20120110
  5. MEMANTINE [Suspect]
     Indication: DEMENTIA ALZHEIMER'S TYPE
     Dosage: 5 MG
     Route: 048
     Dates: start: 20111217, end: 20111223
  6. MEMANTINE [Suspect]
     Dosage: 15 MG
     Route: 048
     Dates: start: 20111231, end: 20120106
  7. MEMANTINE [Suspect]
     Dosage: 20 MG
     Route: 048
     Dates: start: 20120107, end: 20120125
  8. DIAZEPAM [Suspect]
     Dosage: 6 MG
     Route: 048
     Dates: start: 20111226, end: 20120109
  9. MAGNESIUM SULFATE [Concomitant]
     Indication: CONSTIPATION
     Dosage: 990 MG
     Route: 048
     Dates: start: 20110404
  10. ARICEPT [Concomitant]
     Indication: DEMENTIA ALZHEIMER'S TYPE
     Dosage: 5 MG
     Route: 048
     Dates: start: 20101026
  11. ASPIRIN [Concomitant]
     Indication: CEREBRAL INFARCTION
     Dosage: 100 MG
     Route: 048
     Dates: start: 20101124

REACTIONS (9)
  - SOMNOLENCE [None]
  - ASPARTATE AMINOTRANSFERASE INCREASED [None]
  - CONSTIPATION [None]
  - ALANINE AMINOTRANSFERASE INCREASED [None]
  - DIZZINESS [None]
  - GAIT DISTURBANCE [None]
  - HEPATIC FUNCTION ABNORMAL [None]
  - MUSCULAR WEAKNESS [None]
  - MOBILITY DECREASED [None]
